FAERS Safety Report 15971267 (Version 4)
Quarter: 2021Q1

REPORT INFORMATION
  Report Type: Spontaneous
  Country: US (occurrence: US)
  Receive Date: 20190215
  Receipt Date: 20210311
  Transmission Date: 20210419
  Serious: Yes (Congenital Anomaly, Other)
  Sender: FDA-Public Use
  Company Number: PHEH2019US007080

PATIENT
  Sex: Female

DRUGS (1)
  1. ZOFRAN [Suspect]
     Active Substance: ONDANSETRON HYDROCHLORIDE
     Indication: FOETAL EXPOSURE DURING PREGNANCY
     Dosage: MOTHER DOSE: 4 MG, Q8H
     Route: 064

REACTIONS (69)
  - Neonatal respiratory failure [Unknown]
  - Poor feeding infant [Unknown]
  - Weight gain poor [Unknown]
  - Right ventricular enlargement [Unknown]
  - Asthenia [Unknown]
  - Hand-foot-and-mouth disease [Unknown]
  - Pneumonia [Unknown]
  - Foetal exposure during pregnancy [Unknown]
  - Metabolic acidosis [Unknown]
  - Vomiting [Unknown]
  - Lice infestation [Unknown]
  - Abdominal pain [Unknown]
  - Deafness [Unknown]
  - Emotional distress [Unknown]
  - Pain [Unknown]
  - Anhedonia [Unknown]
  - Influenza [Unknown]
  - Upper respiratory tract infection [Unknown]
  - Rhinorrhoea [Unknown]
  - Low birth weight baby [Unknown]
  - Angular cheilitis [Unknown]
  - Rash [Unknown]
  - Congenital aortic valve stenosis [Unknown]
  - Gross motor delay [Unknown]
  - Cholelithiasis [Unknown]
  - Hepatic enzyme abnormal [Unknown]
  - Dermatitis [Unknown]
  - Otitis media [Unknown]
  - Gastroenteritis viral [Unknown]
  - Enuresis [Unknown]
  - Heart disease congenital [Unknown]
  - Bicuspid aortic valve [Unknown]
  - Tricuspid valve incompetence [Unknown]
  - Gastric dilatation [Unknown]
  - Speech disorder [Unknown]
  - Impetigo [Unknown]
  - Dysuria [Unknown]
  - Ventricular septal defect [Unknown]
  - Mitral valve incompetence [Unknown]
  - Renal failure [Unknown]
  - Neonatal respiratory distress [Unknown]
  - Pulmonary valve stenosis [Unknown]
  - Anaemia neonatal [Unknown]
  - Teething [Unknown]
  - Skin abrasion [Unknown]
  - Dyspnoea [Unknown]
  - Wheezing [Unknown]
  - Patent ductus arteriosus [Unknown]
  - Atrial septal defect [Unknown]
  - Pulmonary artery stenosis congenital [Unknown]
  - Hypoxia [Unknown]
  - Conductive deafness [Unknown]
  - Injury [Unknown]
  - Dermatitis diaper [Unknown]
  - Folliculitis [Unknown]
  - Interruption of aortic arch [Unknown]
  - Hypotonia neonatal [Unknown]
  - Intraventricular haemorrhage neonatal [Unknown]
  - Developmental coordination disorder [Unknown]
  - Deformity [Unknown]
  - Hyperphosphataemia [Unknown]
  - Constipation [Unknown]
  - Coagulopathy [Unknown]
  - Blood creatinine increased [Unknown]
  - Cough [Unknown]
  - Furuncle [Unknown]
  - Asthma [Unknown]
  - Pyrexia [Unknown]
  - Onychomycosis [Unknown]
